FAERS Safety Report 15734433 (Version 1)
Quarter: 2018Q4

REPORT INFORMATION
  Report Type: Spontaneous
  Country: CA (occurrence: CA)
  Receive Date: 20181218
  Receipt Date: 20181218
  Transmission Date: 20190205
  Serious: Yes (Hospitalization, Other)
  Sender: FDA-Public Use
  Company Number: PHHY2018CA179035

PATIENT
  Age: 53 Year
  Sex: Male

DRUGS (12)
  1. MYCOPHENOLATE SODIUM [Suspect]
     Active Substance: MYCOPHENOLATE SODIUM
     Indication: CHRONIC GRAFT VERSUS HOST DISEASE IN SKIN
  2. MYCOPHENOLATE SODIUM [Suspect]
     Active Substance: MYCOPHENOLATE SODIUM
     Indication: CHRONIC GRAFT VERSUS HOST DISEASE IN LIVER
  3. TACROLIMUS. [Suspect]
     Active Substance: TACROLIMUS
     Indication: CHRONIC GRAFT VERSUS HOST DISEASE IN INTESTINE
     Route: 065
  4. IMMUNE GLOBULIN NOS [Concomitant]
     Active Substance: IMMUNE GLOBULIN NOS
     Indication: HYPOGAMMAGLOBULINAEMIA
     Route: 042
  5. TACROLIMUS. [Suspect]
     Active Substance: TACROLIMUS
     Indication: CHRONIC GRAFT VERSUS HOST DISEASE IN LIVER
  6. MYCOPHENOLATE SODIUM [Suspect]
     Active Substance: MYCOPHENOLATE SODIUM
     Indication: GRAFT VERSUS HOST DISEASE IN LUNG
  7. CICLOSPORIN [Suspect]
     Active Substance: CYCLOSPORINE
     Indication: GRAFT VERSUS HOST DISEASE
     Route: 065
  8. TACROLIMUS. [Suspect]
     Active Substance: TACROLIMUS
     Indication: CHRONIC GRAFT VERSUS HOST DISEASE IN SKIN
  9. ALEMTUZUMAB [Suspect]
     Active Substance: ALEMTUZUMAB
     Indication: PROPHYLAXIS AGAINST GRAFT VERSUS HOST DISEASE
     Route: 065
  10. PREDNISONE. [Suspect]
     Active Substance: PREDNISONE
     Indication: CHRONIC GRAFT VERSUS HOST DISEASE IN SKIN
     Route: 065
  11. MYCOPHENOLATE SODIUM [Suspect]
     Active Substance: MYCOPHENOLATE SODIUM
     Indication: CHRONIC GRAFT VERSUS HOST DISEASE IN INTESTINE
     Route: 065
  12. AZATHIOPRINE. [Suspect]
     Active Substance: AZATHIOPRINE
     Indication: IMMUNOSUPPRESSION
     Route: 065

REACTIONS (10)
  - Chronic graft versus host disease in intestine [Recovering/Resolving]
  - Progressive multifocal leukoencephalopathy [Recovering/Resolving]
  - Cognitive disorder [Recovering/Resolving]
  - Chronic graft versus host disease in skin [Recovering/Resolving]
  - JC virus infection [Recovering/Resolving]
  - Hyporesponsive to stimuli [Recovering/Resolving]
  - Personality change [Recovering/Resolving]
  - Chronic graft versus host disease in liver [Recovering/Resolving]
  - Aphasia [Recovering/Resolving]
  - Graft versus host disease in lung [Recovering/Resolving]
